FAERS Safety Report 10566171 (Version 1)
Quarter: 2014Q4

REPORT INFORMATION
  Report Type: Spontaneous
  Country: US (occurrence: US)
  Receive Date: 20141105
  Receipt Date: 20141105
  Transmission Date: 20150529
  Serious: Yes (Hospitalization)
  Sender: FDA-Public Use
  Company Number: US-GILEAD-2014-0121104

PATIENT
  Age: 74 Year
  Sex: Female

DRUGS (13)
  1. ENALAPRIL [Concomitant]
     Active Substance: ENALAPRIL
  2. FLUTICASONE [Concomitant]
     Active Substance: FLUTICASONE\FLUTICASONE PROPIONATE
  3. HYDROCHLOROTHIAZIDE. [Concomitant]
     Active Substance: HYDROCHLOROTHIAZIDE
  4. ATENOLOL. [Concomitant]
     Active Substance: ATENOLOL
  5. LANTUS [Concomitant]
     Active Substance: INSULIN GLARGINE
  6. XARELTO [Concomitant]
     Active Substance: RIVAROXABAN
  7. LEVOFLOXACIN. [Concomitant]
     Active Substance: LEVOFLOXACIN
  8. ASPIRIN                            /00002701/ [Concomitant]
     Active Substance: ASPIRIN
  9. LETAIRIS [Suspect]
     Active Substance: AMBRISENTAN
     Indication: PULMONARY ARTERIAL HYPERTENSION
     Dosage: 10 MG, QD
     Route: 065
     Dates: start: 20130909
  10. EFFIENT [Concomitant]
     Active Substance: PRASUGREL HYDROCHLORIDE
  11. PREDNISONE. [Concomitant]
     Active Substance: PREDNISONE
  12. DILTIAZEM HYDROCHLORIDE EXTENDED RELEASE [Concomitant]
     Active Substance: DILTIAZEM HYDROCHLORIDE
  13. LIPITOR [Concomitant]
     Active Substance: ATORVASTATIN CALCIUM

REACTIONS (1)
  - Dyspnoea [Unknown]
